FAERS Safety Report 9059883 (Version 1)
Quarter: 2013Q1

REPORT INFORMATION
  Report Type: Spontaneous
  Country: US (occurrence: US)
  Receive Date: 20130212
  Receipt Date: 20130212
  Transmission Date: 20140127
  Serious: No
  Sender: FDA-Public Use
  Company Number: US-PFIZER INC-2013051675

PATIENT
  Sex: Male

DRUGS (1)
  1. LYRICA [Suspect]
     Indication: PROCEDURAL PAIN
     Dosage: 25 AND 50 MG, UNK

REACTIONS (2)
  - Rash generalised [Recovered/Resolved]
  - Off label use [Unknown]
